FAERS Safety Report 9240922 (Version 1)
Quarter: 2013Q1

REPORT INFORMATION
  Report Type: Spontaneous
  Country: US (occurrence: None)
  Receive Date: 20121120
  Receipt Date: 20121120
  Transmission Date: 20140127
  Serious: No
  Sender: FDA-Public Use
  Company Number: 1000037458

PATIENT
  Age: 65 Year
  Sex: Male

DRUGS (4)
  1. VIIBRYD [Suspect]
     Indication: DEPRESSION
     Route: 048
     Dates: start: 201207, end: 201207
  2. VIIBRYD [Suspect]
     Indication: DEPRESSION
     Route: 048
     Dates: start: 201207, end: 201207
  3. BENICAR (OLMESARTAN MEDOXOMIL) (OLMESARTAN MEDOXOMIL) [Concomitant]
  4. HIGH CHOLESTEROL MEDICATION NOS (HIGH CHOLESTEROL MEDICATION NOS) (HIGH CHOLESTEROL MEDICATION NOS) [Concomitant]

REACTIONS (2)
  - Diarrhoea [None]
  - Headache [None]
